FAERS Safety Report 7072195-5 (Version None)
Quarter: 2010Q4

REPORT INFORMATION
  Report Type: 
  Country: None (occurrence: None)
  Receive Date: 20101029
  Receipt Date: 20100208
  Transmission Date: 20110411
  Serious: Yes (Other)
  Sender: FDA-Public Use
  Company Number: A0835431A

PATIENT
  Sex: Female

DRUGS (2)
  1. ADVAIR DISKUS 100/50 [Suspect]
     Indication: ASTHMA
     Dosage: 1PUFF VARIABLE DOSE
     Route: 055
     Dates: start: 20030101
  2. NO CONCURRENT MEDICATION [Concomitant]

REACTIONS (3)
  - ASTHMA [None]
  - DYSPNOEA [None]
  - PRODUCT QUALITY ISSUE [None]
